FAERS Safety Report 9057308 (Version 1)
Quarter: 2013Q1

REPORT INFORMATION
  Report Type: Spontaneous
  Country: DE (occurrence: DE)
  Receive Date: 20130131
  Receipt Date: 20130131
  Transmission Date: 20140127
  Serious: Yes (Death, Congenital Anomaly)
  Sender: FDA-Public Use
  Company Number: DE-GLAXOSMITHKLINE-D0078583A

PATIENT
  Sex: 0

DRUGS (4)
  1. PAROXETINE [Suspect]
     Indication: SCHIZOPHRENIA
     Dosage: 40MG PER DAY
     Route: 064
     Dates: start: 20110918, end: 20120131
  2. LEPONEX [Suspect]
     Indication: SCHIZOPHRENIA
     Dosage: 400MG PER DAY
     Route: 064
     Dates: start: 20110918, end: 20120131
  3. FOLIC ACID [Concomitant]
     Indication: PROPHYLAXIS OF NEURAL TUBE DEFECT
     Route: 064
     Dates: end: 20120131
  4. CYTOTEC [Concomitant]
     Route: 064
     Dates: start: 20120130, end: 20120131

REACTIONS (4)
  - Renal aplasia [Fatal]
  - Pulmonary malformation [Fatal]
  - Foetal exposure during pregnancy [Fatal]
  - Abortion induced [Fatal]
